FAERS Safety Report 17516321 (Version 4)
Quarter: 2024Q1

REPORT INFORMATION
  Report Type: Spontaneous
  Country: SE (occurrence: SE)
  Receive Date: 20200309
  Receipt Date: 20240304
  Transmission Date: 20240410
  Serious: Yes (Hospitalization)
  Sender: FDA-Public Use
  Company Number: SE-MEDICE ARZNEIMITTEL-ATOMOXETINLIT200109

PATIENT
  Age: 49 Year
  Sex: Female

DRUGS (6)
  1. ATOMOXETINE [Suspect]
     Active Substance: ATOMOXETINE
     Indication: Attention deficit hyperactivity disorder
     Dosage: UNK UNK, QD, 60 MG AND 18 MG DAILY
     Route: 048
  2. ATOMOXETINE [Suspect]
     Active Substance: ATOMOXETINE
     Dosage: 18 MILLIGRAM, QD
     Route: 065
  3. ATOMOXETINE [Suspect]
     Active Substance: ATOMOXETINE
     Dosage: 60 MILLIGRAM, QD
     Route: 065
  4. PREGABALIN [Concomitant]
     Active Substance: PREGABALIN
     Indication: Back pain
     Dosage: 300 MILLIGRAM, QD (150 MG, BID)
     Route: 065
  5. PREGABALIN [Concomitant]
     Active Substance: PREGABALIN
     Indication: Neuralgia
  6. THYROXINE [Concomitant]
     Active Substance: LEVOTHYROXINE
     Indication: Hypothyroidism
     Dosage: 125 MICROGRAM, QD
     Route: 065

REACTIONS (6)
  - Stress cardiomyopathy [Recovered/Resolved]
  - Dizziness [Recovered/Resolved]
  - Dyspnoea [Recovered/Resolved]
  - Chest pain [Recovered/Resolved]
  - Hypotension [Unknown]
  - Tachycardia [Unknown]

NARRATIVE: CASE EVENT DATE: 20190101
